FAERS Safety Report 7508685-8 (Version None)
Quarter: 2011Q2

REPORT INFORMATION
  Report Type: 
  Country: None (occurrence: None)
  Receive Date: 20110527
  Receipt Date: 20100706
  Transmission Date: 20111010
  Serious: No
  Sender: FDA-Public Use
  Company Number: A0868659A

PATIENT
  Age: 21 Year
  Sex: Female

DRUGS (4)
  1. TYLENOL COUGH + COLD [Concomitant]
  2. VENTOLIN [Suspect]
     Indication: ASTHMA
     Dosage: 2PUFF AS REQUIRED
     Route: 055
     Dates: start: 20100701
  3. BIRTH CONTROL [Concomitant]
  4. UNSPECIFIED MEDICATION [Concomitant]

REACTIONS (5)
  - COUGH [None]
  - CHEST DISCOMFORT [None]
  - DRUG INEFFECTIVE [None]
  - DYSPNOEA [None]
  - PRODUCT QUALITY ISSUE [None]
